FAERS Safety Report 12715602 (Version 1)
Quarter: 2016Q3

REPORT INFORMATION
  Report Type: Spontaneous
  Country: US (occurrence: US)
  Receive Date: 20160906
  Receipt Date: 20160906
  Transmission Date: 20161109
  Serious: Yes (Hospitalization, Other)
  Sender: FDA-Public Use
  Company Number: US-ZYDUS-011994

PATIENT
  Age: 84 Year
  Sex: Male

DRUGS (5)
  1. CARVEDILOL/CARVEDILOL HYDROCHLODRIDE [Suspect]
     Active Substance: CARVEDILOL
     Indication: PRODUCT USED FOR UNKNOWN INDICATION
     Route: 065
  2. RIVAROXABAN [Interacting]
     Active Substance: RIVAROXABAN
     Indication: PRODUCT USED FOR UNKNOWN INDICATION
     Route: 048
  3. AMIODARONE [Suspect]
     Active Substance: AMIODARONE
     Indication: PRODUCT USED FOR UNKNOWN INDICATION
     Route: 065
  4. SIMVASTATIN. [Suspect]
     Active Substance: SIMVASTATIN
     Indication: PRODUCT USED FOR UNKNOWN INDICATION
     Route: 065
  5. ACETYLSALICYLIC ACID [Interacting]
     Active Substance: ASPIRIN
     Indication: PRODUCT USED FOR UNKNOWN INDICATION
     Route: 065

REACTIONS (13)
  - Cerebral haemorrhage [Unknown]
  - Aphasia [Unknown]
  - Confusional state [Unknown]
  - Posturing [Unknown]
  - Hyperreflexia [Unknown]
  - Hypertension [Unknown]
  - Dyskinesia [Unknown]
  - Extensor plantar response [Unknown]
  - Cerebral haematoma [Unknown]
  - Drug interaction [Unknown]
  - Pneumonia aspiration [Unknown]
  - Facial paresis [Unknown]
  - Pyrexia [Unknown]
